FAERS Safety Report 13506856 (Version 1)
Quarter: 2017Q2

REPORT INFORMATION
  Report Type: Spontaneous
  Country: US (occurrence: US)
  Receive Date: 20170502
  Receipt Date: 20170502
  Transmission Date: 20170830
  Serious: No
  Sender: FDA-Public Use
  Company Number: US-BAUSCH-BL-2017-004626

PATIENT
  Sex: Female
  Weight: 53.12 kg

DRUGS (3)
  1. LOTEMAX [Suspect]
     Active Substance: LOTEPREDNOL ETABONATE
     Indication: HERPES ZOSTER
     Dosage: DOSE OF ONE TIME ON MONDAY, WEDNESDAY AND FRIDAY
     Route: 065
     Dates: start: 20170220
  2. LOTEMAX [Suspect]
     Active Substance: LOTEPREDNOL ETABONATE
     Indication: HERPES ZOSTER
     Dosage: ONE DROP ON MONDAY AND ONE DROP ON FRIDAY
     Route: 047
     Dates: start: 2009
  3. LOTEMAX [Suspect]
     Active Substance: LOTEPREDNOL ETABONATE
     Dosage: ONE DROP ON MONDAY, TUES, WED, THUS, FRIDAY, SAT AND SUNDAY
     Route: 047
     Dates: start: 201605, end: 20170219

REACTIONS (4)
  - Product quality issue [Unknown]
  - Instillation site erythema [Not Recovered/Not Resolved]
  - Instillation site pain [Recovering/Resolving]
  - Instillation site irritation [Not Recovered/Not Resolved]

NARRATIVE: CASE EVENT DATE: 2016
